FAERS Safety Report 12779485 (Version 1)
Quarter: 2016Q3

REPORT INFORMATION
  Report Type: Spontaneous
  Country: US (occurrence: US)
  Receive Date: 20160923
  Receipt Date: 20160923
  Transmission Date: 20161109
  Serious: Yes (Other)
  Sender: FDA-Public Use
  Company Number: None

PATIENT
  Age: 47 Year
  Sex: Male

DRUGS (11)
  1. CLOZAPINE MYLAN [Suspect]
     Active Substance: CLOZAPINE
     Indication: PSYCHOTIC DISORDER
     Route: 048
  2. CLONAZEPAM. [Concomitant]
     Active Substance: CLONAZEPAM
  3. DIVALPROEX [Concomitant]
     Active Substance: DIVALPROEX SODIUM
  4. SERTRALINE [Concomitant]
     Active Substance: SERTRALINE HYDROCHLORIDE
  5. CLOZAPINE MYLAN [Suspect]
     Active Substance: CLOZAPINE
     Indication: PSYCHOTIC DISORDER
     Route: 048
  6. DOCUSATE SODIUM. [Concomitant]
     Active Substance: DOCUSATE SODIUM
  7. LORATIDINE [Concomitant]
     Active Substance: LORATADINE
  8. ATORVASTATIN [Concomitant]
     Active Substance: ATORVASTATIN
  9. GLYCOPYRROLATE. [Concomitant]
     Active Substance: GLYCOPYRROLATE
  10. RISPERIDONE. [Concomitant]
     Active Substance: RISPERIDONE
  11. PROPRANOLOL [Concomitant]
     Active Substance: PROPRANOLOL\PROPRANOLOL HYDROCHLORIDE

REACTIONS (9)
  - Pneumonia [None]
  - Eosinophil count increased [None]
  - Soliloquy [None]
  - Periorbital oedema [None]
  - Peripheral swelling [None]
  - Dyspnoea [None]
  - Blood glucose increased [None]
  - Blood cholesterol increased [None]
  - Lymphocyte count decreased [None]

NARRATIVE: CASE EVENT DATE: 20160729
